FAERS Safety Report 5959109-3 (Version None)
Quarter: 2008Q4

REPORT INFORMATION
  Report Type: 
  Country: None (occurrence: None)
  Receive Date: 20081120
  Receipt Date: 20071214
  Transmission Date: 20090506
  Serious: No
  Sender: FDA-Public Use
  Company Number: A0699037A

PATIENT
  Age: 51 Year
  Sex: Male

DRUGS (2)
  1. BUPROPION HYDROCHLORIDE [Suspect]
     Indication: ANXIETY
     Dosage: 150MG TWICE PER DAY
     Route: 048
  2. UNKNOWN MEDICATION [Concomitant]
     Indication: ANXIETY

REACTIONS (6)
  - FEELING JITTERY [None]
  - HEADACHE [None]
  - HYPERHIDROSIS [None]
  - INSOMNIA [None]
  - MENTAL STATUS CHANGES [None]
  - TINNITUS [None]
